FAERS Safety Report 10016859 (Version 2)
Quarter: 2014Q1

REPORT INFORMATION
  Report Type: Spontaneous
  Country: BR (occurrence: BR)
  Receive Date: 20140318
  Receipt Date: 20140318
  Transmission Date: 20141002
  Serious: Yes (Other)
  Sender: FDA-Public Use
  Company Number: BR-PFIZER INC-2014071828

PATIENT
  Sex: Male

DRUGS (2)
  1. XALATAN [Suspect]
     Dosage: UNK
  2. CENTRUM [Suspect]
     Dosage: UNK
     Route: 048

REACTIONS (3)
  - Jaw fracture [Unknown]
  - Dysphagia [Unknown]
  - Product quality issue [Unknown]
